FAERS Safety Report 23162897 (Version 1)
Quarter: 2023Q4

REPORT INFORMATION
  Report Type: Report from Study
  Country: US (occurrence: US)
  Receive Date: 20231109
  Receipt Date: 20231109
  Transmission Date: 20240110
  Serious: No
  Sender: FDA-Public Use
  Company Number: US-002147023-NVSC2023US237896

PATIENT
  Age: 81 Year
  Sex: Female

DRUGS (1)
  1. ENTRESTO [Suspect]
     Active Substance: SACUBITRIL\VALSARTAN
     Indication: Product used for unknown indication
     Dosage: 24/26 MG 1/2 TAB, BID
     Route: 065

REACTIONS (6)
  - Hypotension [Unknown]
  - Palpitations [Unknown]
  - Hyperhidrosis [Unknown]
  - Feeling hot [Unknown]
  - Pollakiuria [Unknown]
  - Urinary incontinence [Unknown]
